FAERS Safety Report 9485174 (Version 1)
Quarter: 2013Q3

REPORT INFORMATION
  Report Type: Report from Study
  Country: US (occurrence: US)
  Receive Date: 20130828
  Receipt Date: 20130828
  Transmission Date: 20140515
  Serious: No
  Sender: FDA-Public Use
  Company Number: US-ABBOTT-13P-163-1112999-00

PATIENT
  Sex: Male
  Weight: 92.16 kg

DRUGS (3)
  1. ANDROGEL [Suspect]
     Indication: BLOOD TESTOSTERONE DECREASED
     Dosage: FOUR PUMPS
     Route: 061
     Dates: start: 2012, end: 2012
  2. ANDROGEL [Suspect]
     Dosage: FIVE PUMPS
     Dates: start: 2012, end: 2012
  3. ANDROGEL [Suspect]
     Dosage: SIX PUMPS
     Dates: start: 2012

REACTIONS (1)
  - Blood testosterone decreased [Recovered/Resolved]
